FAERS Safety Report 13953595 (Version 7)
Quarter: 2019Q1

REPORT INFORMATION
  Report Type: Spontaneous
  Country: CA (occurrence: CA)
  Receive Date: 20170911
  Receipt Date: 20190327
  Transmission Date: 20190417
  Serious: Yes (Hospitalization, Other)
  Sender: FDA-Public Use
  Company Number: CA-CELLTRION INC.-2017CA004763

PATIENT

DRUGS (10)
  1. FERROUS FUMARATE [Concomitant]
     Active Substance: FERROUS FUMARATE
     Dosage: UNK
  2. PREDNISONE. [Concomitant]
     Active Substance: PREDNISONE
     Dosage: UNK
     Dates: start: 20170327
  3. INFLECTRA [Suspect]
     Active Substance: INFLIXIMAB-DYYB
     Indication: COLITIS ULCERATIVE
     Dosage: 300 MG, (EVERY 2,6 WEEKS THEN EVERY 8 WEEKS FOR 12 MONTHS)
     Route: 042
     Dates: start: 20170331, end: 20170912
  4. CALCIUM [Concomitant]
     Active Substance: CALCIUM
     Dosage: UNK
  5. REMICADE [Concomitant]
     Active Substance: INFLIXIMAB
     Dosage: UNK
  6. ELIQUIS [Suspect]
     Active Substance: APIXABAN
     Dosage: 5 MG, 2X/DAY
     Route: 065
  7. FRAGMIN [Suspect]
     Active Substance: DALTEPARIN SODIUM
     Dosage: 100 IU/KG, 2X/DAY
     Route: 058
     Dates: start: 20170329
  8. VITAMIN D [Concomitant]
     Active Substance: CHOLECALCIFEROL
     Dosage: UNK
  9. ADVIL [IBUPROFEN] [Concomitant]
     Active Substance: IBUPROFEN
     Indication: PAIN
     Dosage: UNK UNK, AS NEEDED
  10. ADVIL (MEFENAMIC ACID) [Suspect]
     Active Substance: MEFENAMIC ACID
     Dosage: UNK , AS NEEDED
     Route: 065

REACTIONS (26)
  - Hiatus hernia [Recovering/Resolving]
  - Abdominal pain [Recovering/Resolving]
  - Off label use [Unknown]
  - Haemorrhage [Recovering/Resolving]
  - Rectal haemorrhage [Recovering/Resolving]
  - Deep vein thrombosis [Recovering/Resolving]
  - Swelling [Recovering/Resolving]
  - Blood creatinine increased [Recovering/Resolving]
  - Infrequent bowel movements [Unknown]
  - Chest pain [Recovering/Resolving]
  - Dyspnoea exertional [Recovering/Resolving]
  - Compression fracture [Recovering/Resolving]
  - Mobility decreased [Recovering/Resolving]
  - Heart rate increased [Recovering/Resolving]
  - Hepatic steatosis [Recovering/Resolving]
  - Blood albumin decreased [Recovering/Resolving]
  - Neutrophil count increased [Recovering/Resolving]
  - Dysuria [Recovering/Resolving]
  - Pain in extremity [Recovering/Resolving]
  - Uterine leiomyoma [Recovering/Resolving]
  - Platelet count increased [Recovering/Resolving]
  - Oedema peripheral [Recovering/Resolving]
  - International normalised ratio increased [Recovering/Resolving]
  - C-reactive protein increased [Recovering/Resolving]
  - Drug effect incomplete [Recovering/Resolving]
  - Asthenia [Recovering/Resolving]

NARRATIVE: CASE EVENT DATE: 20170418
